FAERS Safety Report 16920873 (Version 1)
Quarter: 2019Q4

REPORT INFORMATION
  Report Type: Spontaneous
  Country: FR (occurrence: FR)
  Receive Date: 20191015
  Receipt Date: 20191015
  Transmission Date: 20200122
  Serious: Yes (Other)
  Sender: FDA-Public Use
  Company Number: FR-009507513-1910FRA007302

PATIENT
  Age: 45 Year
  Sex: Male
  Weight: 83 kg

DRUGS (2)
  1. VELMETIA [Suspect]
     Active Substance: METFORMIN\SITAGLIPTIN
     Indication: TYPE 2 DIABETES MELLITUS
     Dosage: 1 DOSAGE FORM, QD
     Route: 048
     Dates: start: 20190709, end: 20190811
  2. VELMETIA [Suspect]
     Active Substance: METFORMIN\SITAGLIPTIN
     Dosage: 2 DOSAGE FORM, QD
     Route: 048
     Dates: start: 20190811

REACTIONS (3)
  - Gastrointestinal disorder [Not Recovered/Not Resolved]
  - Somnolence [Not Recovered/Not Resolved]
  - Asthenia [Not Recovered/Not Resolved]

NARRATIVE: CASE EVENT DATE: 20190710
